FAERS Safety Report 23138121 (Version 1)
Quarter: 2023Q4

REPORT INFORMATION
  Report Type: Spontaneous
  Country: US (occurrence: US)
  Receive Date: 20231102
  Receipt Date: 20231102
  Transmission Date: 20240110
  Serious: No
  Sender: FDA-Public Use
  Company Number: US-GSK-US2023146626

PATIENT
  Sex: Female

DRUGS (10)
  1. TRELEGY ELLIPTA [Suspect]
     Active Substance: FLUTICASONE FUROATE\UMECLIDINIUM BROMIDE\VILANTEROL TRIFENATATE
     Indication: Chronic obstructive pulmonary disease
     Dosage: 1 PUFF(S), QD, 200-62.5-25MCG
     Route: 055
  2. ALBUTEROL SULFATE [Suspect]
     Active Substance: ALBUTEROL SULFATE
     Indication: Asthma
     Dosage: UNK, QID, INHALE 4 TIMES A DAY AS NEEDED
     Route: 055
  3. AMLODIPINE [Suspect]
     Active Substance: AMLODIPINE BESYLATE
     Indication: Hypertension
     Dosage: 5 MG, QD
  4. LEVOTHYROXINE [Suspect]
     Active Substance: LEVOTHYROXINE
     Indication: Thyroid disorder
     Dosage: 150 MG, QD,ONCE IN THE MORNING
  5. OMEPRAZOLE [Suspect]
     Active Substance: OMEPRAZOLE
     Indication: Abdominal discomfort
     Dosage: 40 MG, QD
  6. PAROXETINE [Suspect]
     Active Substance: PAROXETINE
     Indication: Product used for unknown indication
     Dosage: 40 MG, QD
  7. PREDNISONE [Suspect]
     Active Substance: PREDNISONE
     Indication: Arthritis
     Dosage: 5 MG, QD
  8. ROSUVASTATIN [Suspect]
     Active Substance: ROSUVASTATIN
     Indication: Blood cholesterol
     Dosage: 10 MG, QD
  9. PLAQUENIL [Suspect]
     Active Substance: HYDROXYCHLOROQUINE SULFATE
     Indication: Arthritis
     Dosage: UNK
  10. METHOTREXATE [Suspect]
     Active Substance: METHOTREXATE
     Indication: Arthritis
     Dosage: 6 DF, WE,6 TABLETS ONCE A WEEK 2.5MG

REACTIONS (1)
  - Arthropathy [Unknown]
